FAERS Safety Report 5990748-X (Version None)
Quarter: 2008Q4

REPORT INFORMATION
  Report Type: 
  Country: None (occurrence: None)
  Receive Date: 20081211
  Receipt Date: 20081204
  Transmission Date: 20090506
  Serious: Yes (Other)
  Sender: FDA-Public Use
  Company Number: FR-WATSON-2008-07151

PATIENT
  Sex: Male

DRUGS (5)
  1. TRELSTAR LA MIXJECT (WATSON LABORATORIES) [Suspect]
     Indication: PROSTATE CANCER
     Dosage: 11.25 MG, 1 IN 3 M
     Route: 030
     Dates: start: 20080601
  2. ALDACTAZINE [Concomitant]
     Indication: DRUG USE FOR UNKNOWN INDICATION
     Dosage: UNK
     Route: 048
  3. ATENOLOL [Concomitant]
     Indication: DRUG USE FOR UNKNOWN INDICATION
     Dosage: UNK
     Route: 048
  4. LEVODOPA [Concomitant]
     Indication: DRUG USE FOR UNKNOWN INDICATION
     Dosage: UNK
     Route: 048
  5. LAMICTAL [Concomitant]
     Indication: DRUG USE FOR UNKNOWN INDICATION
     Dosage: UNK
     Route: 048

REACTIONS (2)
  - GENERALISED ANXIETY DISORDER [None]
  - OBSESSIVE-COMPULSIVE DISORDER [None]
